FAERS Safety Report 8880754 (Version 3)
Quarter: 2012Q4

REPORT INFORMATION
  Report Type: 
  Country: FR (occurrence: FR)
  Receive Date: 20121101
  Receipt Date: 20121213
  Transmission Date: 20130627
  Serious: Yes (Disabling)
  Sender: FDA-Public Use
  Company Number: FR-GLAXOSMITHKLINE-B0839362A

PATIENT
  Sex: Female

DRUGS (5)
  1. LAMICTAL [Suspect]
     Indication: BIPOLAR DISORDER
     Route: 048
     Dates: start: 2011
  2. LOXAPAC [Suspect]
     Indication: DEPRESSION
     Route: 048
     Dates: start: 20120615, end: 20120630
  3. TERALITHE [Suspect]
     Indication: BIPOLAR DISORDER
     Dosage: 600MG Per day
     Route: 048
     Dates: start: 2011
  4. ATARAX [Suspect]
     Indication: ANXIETY
     Dosage: 50MG Per day
     Route: 048
     Dates: start: 2011
  5. DONORMYL [Suspect]
     Indication: INSOMNIA
     Dosage: 30MG Per day
     Route: 048
     Dates: start: 2011

REACTIONS (2)
  - Parkinsonism [Unknown]
  - Gait disturbance [Unknown]
